FAERS Safety Report 18777686 (Version 1)
Quarter: 2021Q1

REPORT INFORMATION
  Report Type: Spontaneous
  Country: PT (occurrence: PT)
  Receive Date: 20210122
  Receipt Date: 20210122
  Transmission Date: 20210419
  Serious: Yes (Life-Threatening)
  Sender: FDA-Public Use
  Company Number: PT-FRESENIUS KABI-FK202100804

PATIENT
  Age: 41 Year
  Sex: Male

DRUGS (3)
  1. PREDNISOLONE (MANUFACTURER UNKNOWN) [Suspect]
     Active Substance: PREDNISOLONE
     Indication: DEMYELINATION
     Route: 065
     Dates: start: 202006
  2. METHYLPREDNISOLONE (MANUFACTURER UNKNOWN) [Suspect]
     Active Substance: METHYLPREDNISOLONE
     Indication: DEMYELINATION
     Route: 065
     Dates: start: 202006, end: 202006
  3. PREDNISOLONE (MANUFACTURER UNKNOWN) [Suspect]
     Active Substance: PREDNISOLONE
     Route: 065
     Dates: start: 20200703

REACTIONS (3)
  - COVID-19 [Recovering/Resolving]
  - Infection reactivation [Recovering/Resolving]
  - Symptom masked [Recovering/Resolving]
